FAERS Safety Report 7071819-6 (Version None)
Quarter: 2010Q4

REPORT INFORMATION
  Report Type: 
  Country: None (occurrence: None)
  Receive Date: 20101029
  Receipt Date: 20101020
  Transmission Date: 20110411
  Serious: Yes (Hospitalization)
  Sender: FDA-Public Use
  Company Number: JP-ASTRAZENECA-2010SE48595

PATIENT
  Age: 10 Month
  Sex: Male

DRUGS (3)
  1. FOSCAVIR [Suspect]
     Route: 041
     Dates: start: 20100420, end: 20100715
  2. NEUTROGIN [Concomitant]
     Route: 058
     Dates: start: 20091222, end: 20100826
  3. ESPO SUBCUTANEOUS INJECTION [Concomitant]
     Route: 058
     Dates: start: 20091230, end: 20100903

REACTIONS (1)
  - HYPERCALCAEMIA [None]
